FAERS Safety Report 18312571 (Version 1)
Quarter: 2020Q3

REPORT INFORMATION
  Report Type: Spontaneous
  Country: US (occurrence: US)
  Receive Date: 20200925
  Receipt Date: 20200925
  Transmission Date: 20201103
  Serious: Yes (Hospitalization)
  Sender: FDA-Public Use
  Company Number: US-GRANULES INDIA LIMITED-2091155

PATIENT
  Sex: Female

DRUGS (1)
  1. DIPHENHYDRAMINE HCL CAPSULES USP, 50 MG [Suspect]
     Active Substance: DIPHENHYDRAMINE HYDROCHLORIDE
     Indication: PRODUCT USED FOR UNKNOWN INDICATION
     Route: 065

REACTIONS (4)
  - Product shape issue [Unknown]
  - Suspected product quality issue [Unknown]
  - Product colour issue [Unknown]
  - Chest discomfort [Unknown]
